FAERS Safety Report 20879671 (Version 1)
Quarter: 2022Q2

REPORT INFORMATION
  Report Type: Spontaneous
  Country: US (occurrence: None)
  Receive Date: 20220526
  Receipt Date: 20220526
  Transmission Date: 20220720
  Serious: Yes (Other)
  Sender: FDA-Public Use
  Company Number: None

PATIENT
  Age: 67 Year
  Sex: Male
  Weight: 108 kg

DRUGS (2)
  1. FIRDAPSE [Suspect]
     Active Substance: AMIFAMPRIDINE PHOSPHATE
     Indication: Myasthenic syndrome
     Dosage: FREQUENCY : 4 TIMES A DAY;?
  2. Firdapase Mestinon [Concomitant]

REACTIONS (4)
  - Dyspnoea [None]
  - Asthenia [None]
  - Insomnia [None]
  - Oxygen saturation decreased [None]

NARRATIVE: CASE EVENT DATE: 20220525
